FAERS Safety Report 7314175-8 (Version None)
Quarter: 2011Q1

REPORT INFORMATION
  Report Type: 
  Country: None (occurrence: None)
  Receive Date: 20110225
  Receipt Date: 20100525
  Transmission Date: 20110831
  Serious: No
  Sender: FDA-Public Use
  Company Number: US-MYLANLABS-2010S1009418

PATIENT
  Age: 42 Year
  Sex: Female

DRUGS (1)
  1. AMNESTEEM [Suspect]
     Indication: ACNE
     Dosage: 40 MG
     Route: 048
     Dates: start: 20100317, end: 20100520

REACTIONS (5)
  - TINNITUS [None]
  - NERVOUSNESS [None]
  - FEELING JITTERY [None]
  - MIDDLE INSOMNIA [None]
  - PAIN [None]
